FAERS Safety Report 6824902-1 (Version None)
Quarter: 2010Q3

REPORT INFORMATION
  Report Type: 
  Country: None (occurrence: None)
  Receive Date: 20100708
  Receipt Date: 20061220
  Transmission Date: 20110219
  Serious: No
  Sender: FDA-Public Use
  Company Number: US-PFIZER INC-2007001023

PATIENT
  Sex: Female
  Weight: 67.13 kg

DRUGS (3)
  1. CHANTIX [Suspect]
     Indication: SMOKING CESSATION THERAPY
     Route: 048
     Dates: start: 20061201
  2. ZOLOFT [Concomitant]
     Route: 048
  3. ALBUTEROL [Concomitant]
     Indication: DYSPNOEA
     Route: 048

REACTIONS (5)
  - ABDOMINAL DISTENSION [None]
  - CONSTIPATION [None]
  - DYSPNOEA [None]
  - NAUSEA [None]
  - SPUTUM INCREASED [None]
